FAERS Safety Report 24741853 (Version 2)
Quarter: 2025Q1

REPORT INFORMATION
  Report Type: Report from Study
  Country: PK (occurrence: PK)
  Receive Date: 20241217
  Receipt Date: 20250203
  Transmission Date: 20250409
  Serious: Yes (Death, Other)
  Sender: ROCHE
  Company Number: PK-ROCHE-10000154172

PATIENT
  Age: 60 Year
  Sex: Female

DRUGS (4)
  1. AVASTIN [Suspect]
     Active Substance: BEVACIZUMAB
     Indication: Ovarian cancer
     Route: 040
     Dates: start: 20240723, end: 20241003
  2. AVASTIN [Suspect]
     Active Substance: BEVACIZUMAB
     Route: 040
     Dates: start: 20240723, end: 20241003
  3. AVASTIN [Suspect]
     Active Substance: BEVACIZUMAB
     Route: 040
     Dates: start: 20240723, end: 20241003
  4. AVASTIN [Suspect]
     Active Substance: BEVACIZUMAB
     Route: 040
     Dates: start: 20240723, end: 20241003

REACTIONS (2)
  - Hip fracture [Unknown]
  - Disease progression [Fatal]

NARRATIVE: CASE EVENT DATE: 20241024
